FAERS Safety Report 7942655-0 (Version None)
Quarter: 2011Q4

REPORT INFORMATION
  Report Type: 
  Country: None (occurrence: None)
  Receive Date: 20111122
  Receipt Date: 20110810
  Transmission Date: 20120403
  Serious: Yes (Other)
  Sender: FDA-Public Use
  Company Number: PHHY2011US55709

PATIENT
  Age: 53 Year
  Sex: Male

DRUGS (1)
  1. GILENYA [Suspect]
     Indication: MULTIPLE SCLEROSIS
     Dosage: 0.5 MG, QD, ORAL
     Route: 048
     Dates: start: 20110617, end: 20110620

REACTIONS (5)
  - HYPOAESTHESIA [None]
  - BRONCHITIS [None]
  - OROPHARYNGEAL PAIN [None]
  - BLADDER DISCOMFORT [None]
  - PRODUCTIVE COUGH [None]
